FAERS Safety Report 6110631-9 (Version None)
Quarter: 2009Q1

REPORT INFORMATION
  Report Type: 
  Country: None (occurrence: None)
  Receive Date: 20090306
  Receipt Date: 20090223
  Transmission Date: 20090719
  Serious: Yes (Death, Hospitalization)
  Sender: FDA-Public Use
  Company Number: 237979J08USA

PATIENT
  Age: 69 Year
  Sex: Female

DRUGS (1)
  1. REBIF [Suspect]
     Indication: MULTIPLE SCLEROSIS
     Dosage: 44 MCG, 3 IN 1 WEEKS, SUBCUTANEOUS
     Route: 058
     Dates: start: 20080611, end: 20080709

REACTIONS (5)
  - BONE DISORDER [None]
  - BRAIN NEOPLASM [None]
  - DYSPHAGIA [None]
  - PNEUMONIA ASPIRATION [None]
  - THYROID CANCER [None]
